FAERS Safety Report 14868640 (Version 3)
Quarter: 2018Q2

REPORT INFORMATION
  Report Type: Spontaneous
  Country: BR (occurrence: BR)
  Receive Date: 20180509
  Receipt Date: 20180611
  Transmission Date: 20180711
  Serious: Yes (Hospitalization)
  Sender: FDA-Public Use
  Company Number: BR-B.I. PHARMACEUTICALS,INC./RIDGEFIELD-2018-BI-024546

PATIENT
  Sex: Male
  Weight: 85 kg

DRUGS (5)
  1. AMYTRIL [Concomitant]
     Active Substance: AMITRIPTYLINE HYDROCHLORIDE
     Indication: ANTIDEPRESSANT THERAPY
     Route: 048
     Dates: start: 2006
  2. BACLOFEN. [Concomitant]
     Active Substance: BACLOFEN
     Indication: MUSCLE SPASMS
     Route: 048
     Dates: start: 2006
  3. ATENSINA [Suspect]
     Active Substance: CLONIDINE
     Route: 048
     Dates: start: 201802
  4. ATENSINA [Suspect]
     Active Substance: CLONIDINE
     Indication: BLOOD PRESSURE INCREASED
     Route: 048
     Dates: end: 201802
  5. OMEPRAZOL [Concomitant]
     Active Substance: OMEPRAZOLE
     Indication: ABDOMINAL DISCOMFORT
     Route: 048
     Dates: start: 2006

REACTIONS (4)
  - Blood pressure fluctuation [Not Recovered/Not Resolved]
  - Chest pain [Not Recovered/Not Resolved]
  - Urinary tract infection [Recovered/Resolved]
  - Urinary tract infection [Recovered/Resolved]

NARRATIVE: CASE EVENT DATE: 2017
